FAERS Safety Report 7096027-4 (Version None)
Quarter: 2010Q4

REPORT INFORMATION
  Report Type: 
  Country: None (occurrence: None)
  Receive Date: 20101111
  Receipt Date: 20101028
  Transmission Date: 20110411
  Serious: Yes (Other)
  Sender: FDA-Public Use
  Company Number: PHHY2010ZA61189

PATIENT

DRUGS (1)
  1. ZOMETA [Suspect]
     Dosage: 4 MG, UNK

REACTIONS (2)
  - SWOLLEN TONGUE [None]
  - TONGUE BITING [None]
